FAERS Safety Report 15536459 (Version 5)
Quarter: 2019Q2

REPORT INFORMATION
  Report Type: Report from Study
  Country: CA (occurrence: CA)
  Receive Date: 20181022
  Receipt Date: 20190416
  Transmission Date: 20190711
  Serious: Yes (Other)
  Sender: FDA-Public Use
  Company Number: CA-BRISTOL-MYERS SQUIBB COMPANY-BMS-2018-020695

PATIENT
  Age: 60 Year
  Sex: Male

DRUGS (1)
  1. ABATACEPT [Suspect]
     Active Substance: ABATACEPT
     Indication: RHEUMATOID ARTHRITIS
     Dosage: 750 MG, Q4WK
     Route: 042
     Dates: start: 20171129

REACTIONS (15)
  - Night sweats [Recovering/Resolving]
  - Chills [Recovered/Resolved]
  - Joint swelling [Unknown]
  - Arthropathy [Unknown]
  - Pulmonary mass [Unknown]
  - Incision site pain [Recovering/Resolving]
  - Pyrexia [Recovered/Resolved]
  - Fall [Unknown]
  - Impaired healing [Recovering/Resolving]
  - Colon cancer [Unknown]
  - Back pain [Unknown]
  - Aphonia [Unknown]
  - Oropharyngeal pain [Not Recovered/Not Resolved]
  - Arthralgia [Unknown]
  - Nasopharyngitis [Recovered/Resolved]

NARRATIVE: CASE EVENT DATE: 20181010
